FAERS Safety Report 9222126 (Version 1)
Quarter: 2013Q2

REPORT INFORMATION
  Report Type: Spontaneous
  Country: GB (occurrence: GB)
  Receive Date: 20130410
  Receipt Date: 20130410
  Transmission Date: 20140414
  Serious: Yes (Other)
  Sender: FDA-Public Use
  Company Number: PHFR2013GB002066

PATIENT
  Age: 69 Year
  Sex: Female

DRUGS (1)
  1. ZOLEDRONATE [Suspect]
     Dosage: 3 MG, UNK
     Route: 042
     Dates: start: 20130315, end: 20130315

REACTIONS (5)
  - Hypotension [Recovering/Resolving]
  - Hypoxia [Recovering/Resolving]
  - Body temperature increased [Recovering/Resolving]
  - Tachycardia [Recovering/Resolving]
  - Arthralgia [Recovering/Resolving]
